FAERS Safety Report 5016818-0 (Version None)
Quarter: 2006Q2

REPORT INFORMATION
  Report Type: 
  Country: None (occurrence: None)
  Receive Date: 20060602
  Receipt Date: 20060306
  Transmission Date: 20061013
  Serious: No
  Sender: FDA-Public Use
  Company Number: 2006PV008940

PATIENT
  Age: 51 Year
  Sex: Female

DRUGS (6)
  1. AUGMENTIN '125' [Suspect]
     Indication: FUNGAL INFECTION
     Dosage: 875MG UNKNOWN
     Route: 048
     Dates: start: 20060101, end: 20060210
  2. BYETTA [Suspect]
     Dosage: 5MCG TWICE PER DAY
     Route: 058
     Dates: start: 20060120, end: 20060209
  3. GLUCOPHAGE [Concomitant]
  4. AVANDIA [Concomitant]
  5. GLYNASE [Concomitant]
     Dates: start: 19980101
  6. KETOCONAZOLE [Concomitant]
     Dates: start: 20060213

REACTIONS (6)
  - DECREASED APPETITE [None]
  - DRUG ADMINISTRATION ERROR [None]
  - INJECTION SITE SWELLING [None]
  - INJECTION SITE URTICARIA [None]
  - SNEEZING [None]
  - WEIGHT DECREASED [None]
